FAERS Safety Report 22524505 (Version 1)
Quarter: 2023Q2

REPORT INFORMATION
  Report Type: Spontaneous
  Country: US (occurrence: US)
  Receive Date: 20230606
  Receipt Date: 20230606
  Transmission Date: 20230721
  Serious: Yes (Hospitalization)
  Sender: FDA-Public Use
  Company Number: US-MYLANLABS-2023M1056585

PATIENT
  Age: 59 Year
  Sex: Female

DRUGS (5)
  1. OCTREOTIDE [Suspect]
     Active Substance: OCTREOTIDE
     Indication: Gastrointestinal stoma complication
     Dosage: UNK
     Route: 065
  2. IMODIUM [Suspect]
     Active Substance: LOPERAMIDE HYDROCHLORIDE
     Indication: Gastrointestinal stoma complication
     Dosage: UNK
     Route: 065
  3. OPIUM TINCTURE [Suspect]
     Active Substance: MORPHINE
     Indication: Gastrointestinal stoma complication
     Dosage: UNK
     Route: 065
  4. AXITINIB [Concomitant]
     Active Substance: AXITINIB
     Indication: Renal cell carcinoma
     Dosage: UNK
     Route: 065
  5. AXITINIB [Concomitant]
     Active Substance: AXITINIB
     Indication: Metastatic neoplasm

REACTIONS (1)
  - Drug ineffective [Unknown]
